FAERS Safety Report 14256874 (Version 6)
Quarter: 2021Q3

REPORT INFORMATION
  Report Type: Spontaneous
  Country: JP (occurrence: JP)
  Receive Date: 20171206
  Receipt Date: 20210722
  Transmission Date: 20211014
  Serious: Yes (Hospitalization)
  Sender: FDA-Public Use
  Company Number: JP-ABBVIE-17P-087-2158949-00

PATIENT
  Age: 41 Year
  Sex: Male

DRUGS (1)
  1. HUMIRA [Suspect]
     Active Substance: ADALIMUMAB
     Indication: PUSTULAR PSORIASIS
     Route: 058
     Dates: end: 201301

REACTIONS (4)
  - Pemphigoid [Recovered/Resolved]
  - Alanine aminotransferase increased [Unknown]
  - Psoriasis [Recovering/Resolving]
  - Blood cholesterol increased [Unknown]
